FAERS Safety Report 8341196-9 (Version None)
Quarter: 2012Q2

REPORT INFORMATION
  Report Type: 
  Country: None (occurrence: None)
  Receive Date: 20120507
  Receipt Date: 20120426
  Transmission Date: 20120825
  Serious: Yes (Other)
  Sender: FDA-Public Use
  Company Number: US-ASTRAZENECA-2012SE17823

PATIENT
  Age: 77 Year
  Sex: Female

DRUGS (2)
  1. ATACAND [Suspect]
     Route: 048
  2. ATACAND [Suspect]
     Route: 048

REACTIONS (4)
  - FAMILIAL TREMOR [None]
  - OSTEOARTHRITIS [None]
  - CARDIAC DISORDER [None]
  - THERAPEUTIC RESPONSE UNEXPECTED [None]
